FAERS Safety Report 7120292-8 (Version None)
Quarter: 2010Q4

REPORT INFORMATION
  Report Type: 
  Country: None (occurrence: None)
  Receive Date: 20101123
  Receipt Date: 20101112
  Transmission Date: 20110411
  Serious: Yes (Other)
  Sender: FDA-Public Use
  Company Number: GB-MYLANLABS-2010S1021049

PATIENT
  Age: 71 Year
  Sex: Female
  Weight: 105 kg

DRUGS (9)
  1. INDAPAMIDE [Suspect]
     Indication: HYPERTENSION
     Dates: start: 20090501
  2. ASPIRIN [Concomitant]
     Indication: PRODUCT USED FOR UNKNOWN INDICATION
  3. BISOPROLOL FUMARATE [Concomitant]
     Indication: PRODUCT USED FOR UNKNOWN INDICATION
  4. CANDESARTAN CILEXETIL [Concomitant]
     Indication: PRODUCT USED FOR UNKNOWN INDICATION
  5. CIPROFIBRATE [Concomitant]
     Indication: PRODUCT USED FOR UNKNOWN INDICATION
  6. FEXOFENADINE HCL [Concomitant]
     Indication: PRODUCT USED FOR UNKNOWN INDICATION
  7. GLUCOSAMINE [Concomitant]
     Indication: PRODUCT USED FOR UNKNOWN INDICATION
  8. MOXONIDINE [Concomitant]
     Indication: PRODUCT USED FOR UNKNOWN INDICATION
  9. THERAPEUTIC RADIOPHARMACEUTICALS [Concomitant]
     Indication: BREAST CANCER
     Dates: start: 20050501

REACTIONS (4)
  - PRURITUS [None]
  - RASH [None]
  - SKIN EXFOLIATION [None]
  - URTICARIA [None]
